FAERS Safety Report 13998597 (Version 1)
Quarter: 2017Q3

REPORT INFORMATION
  Report Type: Spontaneous
  Country: US (occurrence: None)
  Receive Date: 20170922
  Receipt Date: 20170922
  Transmission Date: 20171128
  Serious: Yes (Hospitalization)
  Sender: FDA-Public Use
  Company Number: None

PATIENT
  Age: 16 Year
  Sex: Male
  Weight: 118.3 kg

DRUGS (6)
  1. ONCASPAR [Suspect]
     Active Substance: PEGASPARGASE
     Dates: end: 20170901
  2. PREDNISONE. [Suspect]
     Active Substance: PREDNISONE
     Dates: end: 20170913
  3. METHOTREXATE. [Suspect]
     Active Substance: METHOTREXATE
     Dates: end: 20170905
  4. VINCRISTINE SULFATE. [Suspect]
     Active Substance: VINCRISTINE SULFATE
     Dates: end: 20170912
  5. CYTARABINE. [Suspect]
     Active Substance: CYTARABINE
     Dates: end: 20170908
  6. DAUNORUBICIN [Suspect]
     Active Substance: DAUNORUBICIN
     Dates: end: 20170912

REACTIONS (4)
  - Infection [None]
  - Hyperbilirubinaemia [None]
  - Abdominal pain [None]
  - Hepatotoxicity [None]

NARRATIVE: CASE EVENT DATE: 20170914
